FAERS Safety Report 15750265 (Version 12)
Quarter: 2022Q1

REPORT INFORMATION
  Report Type: Spontaneous
  Country: US (occurrence: US)
  Receive Date: 20181221
  Receipt Date: 20220105
  Transmission Date: 20220423
  Serious: Yes (Hospitalization, Other)
  Sender: FDA-Public Use
  Company Number: US-PFIZER INC-2018524764

PATIENT
  Age: 84 Year
  Sex: Female
  Weight: 52 kg

DRUGS (1)
  1. AMLODIPINE BESYLATE [Suspect]
     Active Substance: AMLODIPINE BESYLATE
     Indication: Blood pressure abnormal
     Dosage: 1 DF (TAKEN THE WHOLE PILL)

REACTIONS (9)
  - Syncope [Unknown]
  - Loss of consciousness [Not Recovered/Not Resolved]
  - Hypotension [Unknown]
  - Blood pressure fluctuation [Unknown]
  - Haemorrhage [Unknown]
  - Drug ineffective [Unknown]
  - Illness [Unknown]
  - Dizziness [Unknown]
  - Influenza [Unknown]
